FAERS Safety Report 7604074-6 (Version None)
Quarter: 2011Q2

REPORT INFORMATION
  Report Type: 
  Country: None (occurrence: None)
  Receive Date: 20110630
  Receipt Date: 20110617
  Transmission Date: 20111010
  Serious: Yes (Other)
  Sender: FDA-Public Use
  Company Number: 2011AP001260

PATIENT
  Sex: Female

DRUGS (5)
  1. ESCITALOPRAM OXALATE [Concomitant]
  2. SEROQUEL [Suspect]
     Indication: SCHIZOAFFECTIVE DISORDER BIPOLAR TYPE
     Dosage: 450 MG, PO, QD
     Route: 048
  3. VALPROIC ACID [Concomitant]
  4. ESCITALOPRAM OXALATE [Concomitant]
  5. RAMIPRIL [Suspect]
     Indication: RENAL VESSEL DISORDER
     Dosage: PO
     Route: 048

REACTIONS (7)
  - DIARRHOEA [None]
  - DIVERTICULITIS [None]
  - ANXIETY [None]
  - DRUG INTOLERANCE [None]
  - DIZZINESS [None]
  - DISEASE RECURRENCE [None]
  - ORTHOSTATIC HYPOTENSION [None]
